FAERS Safety Report 6250652-9 (Version None)
Quarter: 2009Q2

REPORT INFORMATION
  Report Type: 
  Country: None (occurrence: None)
  Receive Date: 20090630
  Receipt Date: 20090618
  Transmission Date: 20091009
  Serious: Yes (Death)
  Sender: FDA-Public Use
  Company Number: JP-PFIZER INC-2009222018

PATIENT
  Age: 55 Year

DRUGS (9)
  1. SUNITINIB MALATE [Suspect]
     Indication: GASTROINTESTINAL STROMAL TUMOUR
     Dosage: 37.5 MG, DAILY
     Dates: start: 20090423, end: 20090520
  2. WARFARIN [Concomitant]
     Route: 048
  3. LOXOPROFEN SODIUM [Concomitant]
     Route: 048
  4. SELBEX [Concomitant]
     Route: 048
  5. PARIET [Concomitant]
     Route: 048
  6. BLOPRESS [Concomitant]
     Route: 048
  7. TORASEMIDE [Concomitant]
     Route: 048
  8. SHAKUYAKU-KANZO-TO [Concomitant]
     Route: 048
  9. OXYCONTIN [Concomitant]
     Route: 048

REACTIONS (1)
  - TUMOUR HAEMORRHAGE [None]
